FAERS Safety Report 12967433 (Version 1)
Quarter: 2016Q4

REPORT INFORMATION
  Report Type: Spontaneous
  Country: US (occurrence: US)
  Receive Date: 20161123
  Receipt Date: 20161123
  Transmission Date: 20170207
  Serious: Yes (Hospitalization, Other)
  Sender: FDA-Public Use
  Company Number: US-ACCORD-045684

PATIENT
  Age: 64 Year
  Sex: Male
  Weight: 92.99 kg

DRUGS (8)
  1. ATORVASTATIN CALCIUM PFIZER/PARKER DAVIS [Suspect]
     Active Substance: ATORVASTATIN CALCIUM
     Indication: BLOOD CHOLESTEROL INCREASED
     Dosage: TAKE 1 TABLET DAILY
  2. LIPITOR [Suspect]
     Active Substance: ATORVASTATIN CALCIUM
     Indication: BLOOD CHOLESTEROL INCREASED
     Dosage: UNSURE OF DOSE
  3. CRESTOR [Suspect]
     Active Substance: ROSUVASTATIN CALCIUM
     Indication: BLOOD CHOLESTEROL INCREASED
     Dosage: TOOK ONE HALF TABLET EVERY MORNING
     Dates: start: 2016, end: 2016
  4. MELOXICAM. [Concomitant]
     Active Substance: MELOXICAM
  5. ACETYLSALICYLIC ACID [Concomitant]
     Active Substance: ASPIRIN
  6. METOPROLOL. [Concomitant]
     Active Substance: METOPROLOL
  7. SIMVASTATIN ACCORD [Suspect]
     Active Substance: SIMVASTATIN
     Indication: BLOOD CHOLESTEROL INCREASED
     Dosage: 20 MG ONE TABLET BY MOUTH NIGHTLY, OVAL RED IMPRINT S2
     Route: 048
  8. ELIQUIS [Concomitant]
     Active Substance: APIXABAN
     Indication: THROMBOSIS

REACTIONS (4)
  - Aortic valve replacement [Unknown]
  - Muscular weakness [Recovering/Resolving]
  - Atrial fibrillation [Recovering/Resolving]
  - Myalgia [Recovering/Resolving]

NARRATIVE: CASE EVENT DATE: 201108
